FAERS Safety Report 6542320-0 (Version None)
Quarter: 2010Q1

REPORT INFORMATION
  Report Type: 
  Country: None (occurrence: None)
  Receive Date: 20100114
  Receipt Date: 20100114
  Transmission Date: 20100710
  Serious: Yes (Death)
  Sender: FDA-Public Use
  Company Number: None

PATIENT
  Sex: Female

DRUGS (10)
  1. REVLIMID [Suspect]
     Indication: MYELODYSPLASTIC SYNDROME
     Dosage: 10MG DAILY X 21 DAYS ORAL
     Route: 048
     Dates: start: 20090514, end: 20090602
  2. PREDNISONE [Concomitant]
  3. WARFARIN [Concomitant]
  4. TRAZODONE HCL [Concomitant]
  5. MORPHINE [Concomitant]
  6. OMEPRAZOLE [Concomitant]
  7. COLCHICHINE [Concomitant]
  8. ALENDRONATE SODIUM [Concomitant]
  9. PAROXETINE HCL [Concomitant]
  10. LISINOPRIL AND HYDROCHLOROTHIAZIDE [Concomitant]

REACTIONS (8)
  - ACUTE FEBRILE NEUTROPHILIC DERMATOSIS [None]
  - CONDITION AGGRAVATED [None]
  - CONFUSIONAL STATE [None]
  - HYPERSOMNIA [None]
  - MYELODYSPLASTIC SYNDROME [None]
  - NAUSEA [None]
  - PALPITATIONS [None]
  - TOOTH INFECTION [None]
